FAERS Safety Report 8335347 (Version 2)
Quarter: 2013Q4

REPORT INFORMATION
  Report Type: Spontaneous
  Country: US (occurrence: US)
  Receive Date: 20120113
  Receipt Date: 20131024
  Transmission Date: 20140711
  Serious: No
  Sender: FDA-Public Use
  Company Number: US-BIOGENIDEC-2012BI000584

PATIENT
  Age: 69 Year
  Sex: Female

DRUGS (3)
  1. AVONEX [Suspect]
     Indication: MULTIPLE SCLEROSIS
     Route: 030
     Dates: start: 20110428
  2. TYLENOL [Concomitant]
     Indication: PREMEDICATION
     Dates: start: 20110428
  3. ASPIRIN [Concomitant]
     Indication: PREMEDICATION
     Dates: start: 20110428

REACTIONS (7)
  - Vein disorder [Unknown]
  - Amnesia [Not Recovered/Not Resolved]
  - Feeling abnormal [Recovered/Resolved]
  - Depressed mood [Recovered/Resolved]
  - Influenza like illness [Recovered/Resolved]
  - Feeling hot [Recovered/Resolved]
  - Chills [Recovered/Resolved]
